FAERS Safety Report 25123798 (Version 1)
Quarter: 2025Q1

REPORT INFORMATION
  Report Type: Spontaneous
  Country: TW (occurrence: TW)
  Receive Date: 20250326
  Receipt Date: 20250326
  Transmission Date: 20250408
  Serious: Yes (Other)
  Sender: RANBAXY
  Company Number: TW-SUN PHARMACEUTICAL INDUSTRIES LTD-2025RR-500556

PATIENT
  Age: 53 Year
  Sex: Male

DRUGS (5)
  1. ARIPIPRAZOLE [Suspect]
     Active Substance: ARIPIPRAZOLE
     Indication: Bipolar disorder
     Route: 065
  2. LITHIUM [Suspect]
     Active Substance: LITHIUM
     Indication: Bipolar I disorder
     Route: 048
  3. QUETIAPINE [Suspect]
     Active Substance: QUETIAPINE
     Indication: Bipolar I disorder
     Route: 065
  4. ZOTEPINE [Suspect]
     Active Substance: ZOTEPINE
     Indication: Bipolar I disorder
     Route: 065
  5. SULPIRIDE [Suspect]
     Active Substance: SULPIRIDE
     Indication: Bipolar I disorder
     Route: 065

REACTIONS (2)
  - Rabbit syndrome [Unknown]
  - Drug ineffective [Unknown]
